FAERS Safety Report 13478553 (Version 1)
Quarter: 2017Q2

REPORT INFORMATION
  Report Type: Spontaneous
  Country: DE (occurrence: DE)
  Receive Date: 20170425
  Receipt Date: 20170425
  Transmission Date: 20170830
  Serious: Yes (Death, Other)
  Sender: FDA-Public Use
  Company Number: DE-BAYER-2017-072958

PATIENT
  Age: 56 Year
  Sex: Male

DRUGS (5)
  1. ETOPOSIDE. [Concomitant]
     Active Substance: ETOPOSIDE
     Indication: CHEMOTHERAPY
  2. ACETYLSALICYLIC ACID({=100 MG) [Suspect]
     Active Substance: ASPIRIN
     Indication: ANTIPLATELET THERAPY
  3. BLEOMYCIN [Concomitant]
     Active Substance: BLEOMYCIN SULFATE
     Indication: CHEMOTHERAPY
  4. CLOPIDOGREL [Suspect]
     Active Substance: CLOPIDOGREL BISULFATE
     Indication: ANTIPLATELET THERAPY
  5. CISPLATIN. [Suspect]
     Active Substance: CISPLATIN
     Indication: CHEMOTHERAPY

REACTIONS (7)
  - Labelled drug-drug interaction medication error [None]
  - Brain oedema [Fatal]
  - Subdural haemorrhage [None]
  - Hemiplegia [None]
  - Cerebral artery occlusion [None]
  - Thrombocytopenia [None]
  - Drug administration error [None]
